FAERS Safety Report 6870989-X (Version None)
Quarter: 2010Q3

REPORT INFORMATION
  Report Type: 
  Country: None (occurrence: None)
  Receive Date: 20100723
  Receipt Date: 20100715
  Transmission Date: 20110219
  Serious: Yes (Hospitalization)
  Sender: FDA-Public Use
  Company Number: JP-ABBOTT-10P-087-0634489-00

PATIENT
  Sex: Male

DRUGS (13)
  1. HUMIRA [Suspect]
     Indication: RHEUMATOID ARTHRITIS
     Route: 058
     Dates: start: 20100318, end: 20100318
  2. URSODIOL [Concomitant]
     Indication: PRODUCT USED FOR UNKNOWN INDICATION
     Dosage: DAILY DOSE:200 MG
     Route: 048
     Dates: start: 20100301
  3. ROXATIDINE ACETATE HCL [Concomitant]
     Indication: PRODUCT USED FOR UNKNOWN INDICATION
     Dosage: DAILY DOSE 75MG
     Route: 048
     Dates: start: 20100301
  4. CELECOXIB [Concomitant]
     Indication: PRODUCT USED FOR UNKNOWN INDICATION
     Dosage: DAILY DOSE: 400MG
     Route: 048
     Dates: start: 20100301
  5. METHYLPREDNISOLONE [Concomitant]
     Indication: PROPHYLAXIS
     Dosage: DAILY DOSE: 8MG
     Route: 048
     Dates: start: 20100301
  6. METHYLPREDNISOLONE [Concomitant]
     Indication: ADVERSE DRUG REACTION
  7. EBASTINE [Concomitant]
     Indication: PRODUCT USED FOR UNKNOWN INDICATION
     Dosage: DAILY DOSE: 10MG
     Route: 048
     Dates: start: 20100315
  8. METHOTREXATE [Concomitant]
     Indication: RHEUMATOID ARTHRITIS
     Dosage: 6 MG PER WEEK
     Route: 048
     Dates: start: 20100315
  9. FOLIC ACID [Concomitant]
     Indication: PRODUCT USED FOR UNKNOWN INDICATION
     Dosage: 5 MG PER WEEK
     Route: 048
     Dates: start: 20100315
  10. PREDNISOLONE [Concomitant]
     Indication: PROPHYLAXIS
     Route: 042
     Dates: start: 20100320, end: 20100320
  11. PREDNISOLONE [Concomitant]
     Indication: ADVERSE DRUG REACTION
     Dates: start: 20100321, end: 20100327
  12. PREDNISOLONE [Concomitant]
     Dates: start: 20100328, end: 20100401
  13. H1/H2 RECEPTOR ANTAGONIST [Concomitant]
     Indication: PROPHYLAXIS

REACTIONS (4)
  - ANAPHYLACTIC REACTION [None]
  - DYSPNOEA [None]
  - LARYNGEAL OEDEMA [None]
  - PHARYNGEAL OEDEMA [None]
